FAERS Safety Report 15654635 (Version 1)
Quarter: 2018Q4

REPORT INFORMATION
  Report Type: Spontaneous
  Country: US (occurrence: US)
  Receive Date: 20181126
  Receipt Date: 20181126
  Transmission Date: 20190205
  Serious: No
  Sender: FDA-Public Use
  Company Number: US-BIOGEN-2018BI00661167

PATIENT
  Sex: Female

DRUGS (6)
  1. TECFIDERA [Suspect]
     Active Substance: DIMETHYL FUMARATE
     Indication: MULTIPLE SCLEROSIS
     Route: 048
  2. BIOTIN [Concomitant]
     Active Substance: BIOTIN
     Route: 065
  3. VITAMIN D [Concomitant]
     Active Substance: CHOLECALCIFEROL
     Route: 065
  4. HYDROCHLOROTHIAZIDE. [Concomitant]
     Active Substance: HYDROCHLOROTHIAZIDE
     Route: 065
  5. PREDNISOLONE. [Concomitant]
     Active Substance: PREDNISOLONE
     Route: 065
  6. QUINAPRIL. [Concomitant]
     Active Substance: QUINAPRIL
     Route: 065

REACTIONS (2)
  - Product dose omission [Unknown]
  - Multiple sclerosis relapse [Unknown]
